FAERS Safety Report 5097490-0 (Version None)
Quarter: 2006Q3

REPORT INFORMATION
  Report Type: 
  Country: None (occurrence: None)
  Receive Date: 20060901
  Receipt Date: 20060821
  Transmission Date: 20061208
  Serious: Yes (Other)
  Sender: FDA-Public Use
  Company Number: 2006102604

PATIENT
  Age: 25 Year
  Sex: Female
  Weight: 79.3795 kg

DRUGS (2)
  1. DEPO-PROVERA [Suspect]
     Indication: CONTRACEPTION
     Dosage: SEE IMAGE
     Dates: start: 19991013, end: 19991013
  2. DEPO-PROVERA [Suspect]
     Indication: CONTRACEPTION
     Dosage: SEE IMAGE
     Dates: start: 20050801, end: 20050801

REACTIONS (11)
  - ALOPECIA [None]
  - CERVIX CARCINOMA [None]
  - DENTAL CARIES [None]
  - DEPRESSION [None]
  - DRUG INEFFECTIVE [None]
  - HAEMORRHAGE [None]
  - HEADACHE [None]
  - INFERTILITY FEMALE [None]
  - MOOD SWINGS [None]
  - POLLAKIURIA [None]
  - WEIGHT INCREASED [None]
